FAERS Safety Report 9088414 (Version 1)
Quarter: 2013Q1

REPORT INFORMATION
  Report Type: Report from Study
  Country: US (occurrence: US)
  Receive Date: 20130130
  Receipt Date: 20130130
  Transmission Date: 20140127
  Serious: No
  Sender: FDA-Public Use
  Company Number: US-ABBOTT-12P-163-0978847-00

PATIENT
  Age: 25 Year
  Sex: Female

DRUGS (4)
  1. HUMIRA [Suspect]
     Indication: RHEUMATOID ARTHRITIS
  2. IRON [Concomitant]
     Indication: FATIGUE
     Dosage: AS REQUIRED
  3. DOXYCYCLINE [Concomitant]
     Indication: INFLAMMATION
     Dosage: AS NEEDED
  4. DOXYCYCLINE [Concomitant]
     Indication: SWELLING

REACTIONS (3)
  - Loss of libido [Not Recovered/Not Resolved]
  - Local swelling [Not Recovered/Not Resolved]
  - Vulvovaginal dryness [Not Recovered/Not Resolved]
